FAERS Safety Report 8292443-3 (Version None)
Quarter: 2012Q2

REPORT INFORMATION
  Report Type: 
  Country: None (occurrence: None)
  Receive Date: 20120417
  Receipt Date: 20120417
  Transmission Date: 20120825
  Serious: Yes (Hospitalization, Other)
  Sender: FDA-Public Use
  Company Number: BR-ABBOTT-12P-020-0896965-00

PATIENT
  Sex: Female
  Weight: 70 kg

DRUGS (6)
  1. MESALAMINE [Concomitant]
  2. CORTISONE ACETATE [Concomitant]
     Indication: COLITIS
  3. HUMIRA [Suspect]
     Indication: RHEUMATOID ARTHRITIS
     Dates: start: 20110217, end: 20111101
  4. HUMIRA [Suspect]
     Indication: COLITIS
  5. MESALAMINE [Concomitant]
     Indication: COLITIS
  6. MESALAMINE [Concomitant]

REACTIONS (5)
  - COLITIS [None]
  - MALAISE [None]
  - ANAEMIA [None]
  - HYPERSENSITIVITY [None]
  - THROAT TIGHTNESS [None]
